FAERS Safety Report 15485243 (Version 2)
Quarter: 2019Q2

REPORT INFORMATION
  Report Type: Spontaneous
  Country: US (occurrence: US)
  Receive Date: 20181010
  Receipt Date: 20190509
  Transmission Date: 20190711
  Serious: No
  Sender: FDA-Public Use
  Company Number: US-ROCHE-2176091

PATIENT
  Sex: Male

DRUGS (6)
  1. PLAVIX [Concomitant]
     Active Substance: CLOPIDOGREL BISULFATE
  2. ESBRIET [Suspect]
     Active Substance: PIRFENIDONE
     Indication: IDIOPATHIC PULMONARY FIBROSIS
     Route: 048
     Dates: start: 20180517
  3. ANORO ELLIPTA [Concomitant]
     Active Substance: UMECLIDINIUM BROMIDE\VILANTEROL TRIFENATATE
     Dosage: 62.5-25M
     Route: 065
  4. ASPIR 81 [Concomitant]
     Active Substance: ASPIRIN
     Route: 065
  5. PREDNISONE. [Concomitant]
     Active Substance: PREDNISONE
  6. SINGULAIR [Concomitant]
     Active Substance: MONTELUKAST SODIUM
     Route: 065

REACTIONS (8)
  - Pruritus [Unknown]
  - Product use complaint [Not Recovered/Not Resolved]
  - Sunburn [Unknown]
  - Weight decreased [Unknown]
  - Increased tendency to bruise [Unknown]
  - Haemorrhage [Unknown]
  - Dysphagia [Not Recovered/Not Resolved]
  - Photosensitivity reaction [Not Recovered/Not Resolved]
